FAERS Safety Report 19165493 (Version 1)
Quarter: 2021Q2

REPORT INFORMATION
  Report Type: Spontaneous
  Country: FR (occurrence: FR)
  Receive Date: 20210421
  Receipt Date: 20210421
  Transmission Date: 20210717
  Serious: Yes (Other)
  Sender: FDA-Public Use
  Company Number: FR-ALLERGAN-2110256US

PATIENT
  Sex: Female

DRUGS (1)
  1. OZURDEX [Suspect]
     Active Substance: DEXAMETHASONE
     Indication: RETINAL VEIN OCCLUSION
     Dosage: 0.7 MG, SINGLE
     Route: 031
     Dates: start: 20201204, end: 20201204

REACTIONS (5)
  - Macular scar [Unknown]
  - Macular oedema [Unknown]
  - Intraocular pressure increased [Recovered/Resolved]
  - Retinal thickening [Unknown]
  - Retinal exudates [Unknown]

NARRATIVE: CASE EVENT DATE: 20201230
